FAERS Safety Report 5606300-1 (Version None)
Quarter: 2008Q1

REPORT INFORMATION
  Report Type: 
  Country: None (occurrence: None)
  Receive Date: 20080129
  Receipt Date: 20070515
  Transmission Date: 20080703
  Serious: No
  Sender: FDA-Public Use
  Company Number: A0651482A

PATIENT
  Sex: Male

DRUGS (2)
  1. WELLBUTRIN [Suspect]
     Indication: DRUG USE FOR UNKNOWN INDICATION
     Dates: start: 20070501
  2. LEXAPRO [Suspect]
     Indication: DRUG USE FOR UNKNOWN INDICATION
     Dates: end: 20070501

REACTIONS (6)
  - CHEST DISCOMFORT [None]
  - DISORIENTATION [None]
  - DRUG INTERACTION [None]
  - IRRITABILITY [None]
  - PARAESTHESIA [None]
  - WITHDRAWAL SYNDROME [None]
